FAERS Safety Report 5042004-4 (Version None)
Quarter: 2006Q2

REPORT INFORMATION
  Report Type: 
  Country: None (occurrence: None)
  Receive Date: 20060630
  Receipt Date: 20060614
  Transmission Date: 20061013
  Serious: Yes (Hospitalization)
  Sender: FDA-Public Use
  Company Number: DSA_28351_2006

PATIENT
  Age: 83 Year
  Sex: Male

DRUGS (2)
  1. ENALAPRIL MALEATE [Suspect]
     Dosage: 10 MG BID PO
     Route: 048
     Dates: start: 20060414, end: 20060416
  2. ENALAPRIL MELEATE [Suspect]
     Dosage: 10 MG Q DAY PO
     Route: 048
     Dates: end: 20060413

REACTIONS (4)
  - BLOOD POTASSIUM INCREASED [None]
  - BLOOD PRESSURE ABNORMAL [None]
  - RENAL ARTERY STENOSIS [None]
  - RENAL IMPAIRMENT [None]
